APPROVED DRUG PRODUCT: DIAZEPAM
Active Ingredient: DIAZEPAM
Strength: 10MG/2ML (5MG/ML)
Dosage Form/Route: GEL;RECTAL
Application: A217468 | Product #002 | TE Code: AB
Applicant: NAVINTA LLC
Approved: Nov 14, 2025 | RLD: No | RS: No | Type: RX